FAERS Safety Report 20006905 (Version 3)
Quarter: 2022Q3

REPORT INFORMATION
  Report Type: Report from Study
  Country: MX (occurrence: MX)
  Receive Date: 20211028
  Receipt Date: 20220830
  Transmission Date: 20221027
  Serious: Yes (Other)
  Sender: FDA-Public Use
  Company Number: MX-NOVARTISPH-NVSC2021MX118053

PATIENT
  Age: 62 Year
  Sex: Female
  Weight: 75 kg

DRUGS (9)
  1. GILENYA [Suspect]
     Active Substance: FINGOLIMOD HYDROCHLORIDE
     Indication: Multiple sclerosis
     Dosage: 0.5 MG, QD
     Route: 048
     Dates: start: 20181205
  2. GILENYA [Suspect]
     Active Substance: FINGOLIMOD HYDROCHLORIDE
     Dosage: 0.5 MG, QD
     Route: 048
     Dates: start: 20181218
  3. GILENYA [Suspect]
     Active Substance: FINGOLIMOD HYDROCHLORIDE
     Dosage: 0.5 MG, QD
     Route: 048
     Dates: start: 20191205, end: 20210816
  4. GILENYA [Suspect]
     Active Substance: FINGOLIMOD HYDROCHLORIDE
     Dosage: 0.5 MG, QD
     Route: 048
     Dates: end: 20210802
  5. GILENYA [Suspect]
     Active Substance: FINGOLIMOD HYDROCHLORIDE
     Dosage: 0.5 MG, QD
     Route: 048
     Dates: start: 20210921
  6. GILENYA [Suspect]
     Active Substance: FINGOLIMOD HYDROCHLORIDE
     Dosage: 0.5 MG, QD
     Route: 048
     Dates: start: 20210921
  7. INTERFERON BETA [Concomitant]
     Active Substance: INTERFERON BETA
     Indication: Multiple sclerosis
     Dosage: 1 APPLICATION, EVERY 8 DAYS
     Route: 030
     Dates: start: 2011, end: 2018
  8. PREGABALIN [Concomitant]
     Active Substance: PREGABALIN
     Indication: Product used for unknown indication
     Dosage: 150 MG, Q12H
     Route: 048
     Dates: start: 202108
  9. PREGABALIN [Concomitant]
     Active Substance: PREGABALIN
     Dosage: 150 MG, QD (AT NIGHT)
     Route: 065

REACTIONS (16)
  - Herpes virus infection [Recovered/Resolved with Sequelae]
  - Glucose tolerance impaired [Not Recovered/Not Resolved]
  - Immunodeficiency [Not Recovered/Not Resolved]
  - Insomnia [Recovered/Resolved]
  - Discomfort [Unknown]
  - Sensory loss [Not Recovered/Not Resolved]
  - Guttate psoriasis [Not Recovered/Not Resolved]
  - Skin irritation [Recovered/Resolved]
  - Skin odour abnormal [Recovered/Resolved]
  - Psoriasis [Not Recovered/Not Resolved]
  - Somnolence [Recovering/Resolving]
  - Pain [Unknown]
  - Urinary tract infection [Not Recovered/Not Resolved]
  - Dizziness [Recovering/Resolving]
  - Hyperglycaemia [Not Recovered/Not Resolved]
  - Blood triglycerides abnormal [Not Recovered/Not Resolved]

NARRATIVE: CASE EVENT DATE: 20210308
